FAERS Safety Report 5799730-9 (Version None)
Quarter: 2008Q3

REPORT INFORMATION
  Report Type: 
  Country: None (occurrence: None)
  Receive Date: 20080703
  Receipt Date: 20080618
  Transmission Date: 20090109
  Serious: Yes (Other)
  Sender: FDA-Public Use
  Company Number: ES-BAYER-200821091GPV

PATIENT
  Age: 13 Year
  Sex: Male

DRUGS (3)
  1. FLUDARABINE PHOSPHATE [Suspect]
     Indication: STEM CELL TRANSPLANT
     Dosage: TOTAL DAILY DOSE: 75 MG/M2
     Route: 065
  2. CYCLOPHOSPHAMIDE [Suspect]
     Indication: STEM CELL TRANSPLANT
     Dosage: AS USED: 100 MG/M2
     Route: 065
  3. AMPHOTERICIN B [Concomitant]
     Indication: ANTIFUNGAL PROPHYLAXIS
     Dosage: AS USED: 3 MG/KG
     Route: 065

REACTIONS (13)
  - BRONCHOPULMONARY ASPERGILLOSIS [None]
  - CANDIDIASIS [None]
  - CYSTITIS HAEMORRHAGIC [None]
  - CYTOMEGALOVIRUS CHORIORETINITIS [None]
  - DIARRHOEA [None]
  - ENTEROCOCCAL BACTERAEMIA [None]
  - HUMAN POLYOMAVIRUS INFECTION [None]
  - HYPERTENSION [None]
  - RESPIRATORY FAILURE [None]
  - REVERSIBLE POSTERIOR LEUKOENCEPHALOPATHY SYNDROME [None]
  - SALMONELLOSIS [None]
  - SYSTEMIC MYCOSIS [None]
  - URINARY TRACT INFECTION FUNGAL [None]
